FAERS Safety Report 4365266-5 (Version None)
Quarter: 2004Q2

REPORT INFORMATION
  Report Type: 
  Country: None (occurrence: None)
  Receive Date: 20040521
  Receipt Date: 20040430
  Transmission Date: 20050107
  Serious: Yes (Life-Threatening)
  Sender: FDA-Public Use
  Company Number: D01200401189

PATIENT
  Age: 77 Year

DRUGS (7)
  1. (FONDAPARINUX) - SOLUTION [Suspect]
     Indication: MYOCARDIAL INFARCTION
     Dosage: 2.5 MG QD SUBCUTANEOUS
     Route: 058
     Dates: start: 20040404
  2. ASPIRIN [Concomitant]
  3. CLOPIDOGREL BISULFATE [Concomitant]
  4. ATORVASTATIN CALCIUM [Concomitant]
  5. METOPROLOL TARTRATE [Concomitant]
  6. NITROGLYCERIN [Concomitant]
  7. RAMIPRIL [Concomitant]

REACTIONS (5)
  - CATHETER RELATED COMPLICATION [None]
  - CORONARY ARTERY OCCLUSION [None]
  - CORONARY ARTERY STENOSIS [None]
  - CORONARY ARTERY THROMBOSIS [None]
  - DRUG INEFFECTIVE [None]
